FAERS Safety Report 5091287-3 (Version None)
Quarter: 2006Q3

REPORT INFORMATION
  Report Type: 
  Country: None (occurrence: None)
  Receive Date: 20060829
  Receipt Date: 20060816
  Transmission Date: 20061208
  Serious: Yes (Other)
  Sender: FDA-Public Use
  Company Number: IT-AVENTIS-200614383EU

PATIENT
  Age: 63 Year
  Sex: Male

DRUGS (4)
  1. CLEXANE [Suspect]
     Indication: ATRIAL FIBRILLATION
     Route: 058
     Dates: start: 20060813, end: 20060814
  2. AMIODAR [Suspect]
     Indication: ATRIAL FIBRILLATION
     Route: 042
     Dates: start: 20060813, end: 20060814
  3. ASPARTATE POTASSIUM [Concomitant]
     Dosage: DOSE: 1 TABLET
  4. MAGNESIUM ASPARTATE [Concomitant]
     Dosage: DOSE: 1 TABLET

REACTIONS (2)
  - HYPERBILIRUBINAEMIA [None]
  - TRANSAMINASES INCREASED [None]
